FAERS Safety Report 9976674 (Version 1)
Quarter: 2014Q1

REPORT INFORMATION
  Report Type: Report from Study
  Country: US (occurrence: US)
  Receive Date: 20140306
  Receipt Date: 20140306
  Transmission Date: 20141002
  Serious: No
  Sender: FDA-Public Use
  Company Number: US-ABBVIE-13P-163-1165989-00

PATIENT
  Age: 50 Year
  Sex: Male

DRUGS (6)
  1. HUMIRA [Suspect]
     Indication: COLITIS ULCERATIVE
     Dates: start: 20131003, end: 20131003
  2. HUMIRA [Suspect]
     Dates: start: 20131017, end: 20131017
  3. HUMIRA [Suspect]
     Dates: start: 20131031
  4. LIALDA [Concomitant]
     Indication: COLITIS ULCERATIVE
     Dosage: TWO TABLETS
  5. SIMVASTATIN [Concomitant]
     Indication: BLOOD CHOLESTEROL INCREASED
  6. PAIN KILLER [Concomitant]
     Indication: PRODUCT USED FOR UNKNOWN INDICATION

REACTIONS (1)
  - Oral herpes [Recovering/Resolving]
